FAERS Safety Report 14606953 (Version 4)
Quarter: 2019Q3

REPORT INFORMATION
  Report Type: Spontaneous
  Country: US (occurrence: US)
  Receive Date: 20180307
  Receipt Date: 20190724
  Transmission Date: 20191004
  Serious: Yes (Hospitalization, Other)
  Sender: FDA-Public Use
  Company Number: US-ASTRAZENECA-2018SE26782

PATIENT
  Age: 23667 Day
  Sex: Male
  Weight: 77.1 kg

DRUGS (39)
  1. NEXIUM [Suspect]
     Active Substance: ESOMEPRAZOLE MAGNESIUM
     Indication: GASTROOESOPHAGEAL REFLUX DISEASE
     Route: 048
     Dates: start: 20100311, end: 20170219
  2. CRESTOR [Concomitant]
     Active Substance: ROSUVASTATIN CALCIUM
     Indication: BLOOD CHOLESTEROL DECREASED
     Dates: start: 20100329, end: 20101220
  3. ASPIRIN. [Concomitant]
     Active Substance: ASPIRIN
     Indication: ANTICOAGULANT THERAPY
     Dates: start: 2013
  4. LOVAZA [Concomitant]
     Active Substance: OMEGA-3-ACID ETHYL ESTERS
     Dates: start: 2018
  5. PRILOSEC [Concomitant]
     Active Substance: OMEPRAZOLE MAGNESIUM
  6. NEXIUM [Suspect]
     Active Substance: ESOMEPRAZOLE MAGNESIUM
     Indication: GASTROOESOPHAGEAL REFLUX DISEASE
     Route: 048
     Dates: start: 20130110
  7. PROTONIX [Suspect]
     Active Substance: PANTOPRAZOLE SODIUM
     Indication: GASTROOESOPHAGEAL REFLUX DISEASE
     Route: 065
     Dates: start: 20180816
  8. ZETIA [Concomitant]
     Active Substance: EZETIMIBE
     Dates: start: 20161111
  9. KEFLEX [Concomitant]
     Active Substance: CEPHALEXIN
  10. FENOFIBRATE. [Concomitant]
     Active Substance: FENOFIBRATE
  11. PROTONIX [Suspect]
     Active Substance: PANTOPRAZOLE SODIUM
     Indication: GASTROOESOPHAGEAL REFLUX DISEASE
     Dosage: GENERIC
     Route: 065
     Dates: start: 20190327
  12. VITAMIN D3 [Concomitant]
     Active Substance: CHOLECALCIFEROL
     Dates: start: 2015
  13. LANTUS [Concomitant]
     Active Substance: INSULIN GLARGINE
     Dates: start: 2018
  14. CARAFATE [Concomitant]
     Active Substance: SUCRALFATE
  15. OMEPRAZOLE. [Suspect]
     Active Substance: OMEPRAZOLE
     Route: 048
     Dates: start: 201003, end: 201701
  16. PRILOSEC OTC [Suspect]
     Active Substance: OMEPRAZOLE MAGNESIUM
     Indication: GASTROOESOPHAGEAL REFLUX DISEASE
     Route: 048
  17. PRILOSEC OTC [Suspect]
     Active Substance: OMEPRAZOLE MAGNESIUM
     Indication: GASTROOESOPHAGEAL REFLUX DISEASE
     Route: 048
     Dates: start: 2014, end: 2015
  18. NITROSTAT [Concomitant]
     Active Substance: NITROGLYCERIN
     Dates: start: 20161114
  19. AMBIEN [Concomitant]
     Active Substance: ZOLPIDEM TARTRATE
  20. LOSARTAN. [Concomitant]
     Active Substance: LOSARTAN
     Indication: HYPERTENSION
     Dates: start: 20140426, end: 20141101
  21. TUMS [Concomitant]
     Active Substance: CALCIUM CARBONATE
     Dates: start: 2018
  22. COUMADIN [Concomitant]
     Active Substance: WARFARIN SODIUM
  23. VITAMIN B12 [Concomitant]
     Active Substance: CYANOCOBALAMIN
     Dates: start: 2018
  24. DULCOLAX NOS [Concomitant]
     Active Substance: BISACODYL OR DOCUSATE SODIUM
  25. LEVOFLOXACIN. [Concomitant]
     Active Substance: LEVOFLOXACIN
     Indication: BACTERIAL INFECTION
     Dates: start: 20170206
  26. BENAZEPRIL [Concomitant]
     Active Substance: BENAZEPRIL HYDROCHLORIDE
     Dates: start: 20091231, end: 20120617
  27. SPIRONOLACTONE. [Concomitant]
     Active Substance: SPIRONOLACTONE
     Indication: CARDIAC FAILURE
     Dates: start: 20091217, end: 20161127
  28. PRAVASTATIN. [Concomitant]
     Active Substance: PRAVASTATIN
     Dates: start: 20110820, end: 20130211
  29. RANITIDINE. [Concomitant]
     Active Substance: RANITIDINE
     Dates: start: 20161111
  30. ZOLPIDEM [Concomitant]
     Active Substance: ZOLPIDEM TARTRATE
     Dates: start: 2018
  31. FLUTICASONE. [Concomitant]
     Active Substance: FLUTICASONE
  32. LIDOCAINE. [Concomitant]
     Active Substance: LIDOCAINE
  33. OMEPRAZOLE. [Suspect]
     Active Substance: OMEPRAZOLE
     Route: 048
     Dates: start: 20170131
  34. CRESTOR [Concomitant]
     Active Substance: ROSUVASTATIN CALCIUM
     Indication: BLOOD CHOLESTEROL DECREASED
     Dates: start: 20140207, end: 20170625
  35. AVELOX [Concomitant]
     Active Substance: MOXIFLOXACIN HYDROCHLORIDE
     Dates: start: 20140724
  36. SIMVASTATIN. [Concomitant]
     Active Substance: SIMVASTATIN
     Dates: start: 20110820, end: 20130211
  37. CARVEDILOL. [Concomitant]
     Active Substance: CARVEDILOL
     Dates: start: 20161111
  38. AZITHROMYCIN ANHYDROUS. [Concomitant]
     Active Substance: AZITHROMYCIN ANHYDROUS
     Dates: start: 20140324, end: 20150520
  39. NEXIUM [Suspect]
     Active Substance: ESOMEPRAZOLE MAGNESIUM
     Indication: GASTROOESOPHAGEAL REFLUX DISEASE
     Route: 048
     Dates: start: 201003, end: 201701

REACTIONS (2)
  - Nephrogenic anaemia [Unknown]
  - Chronic kidney disease [Not Recovered/Not Resolved]

NARRATIVE: CASE EVENT DATE: 20140725
